FAERS Safety Report 5675066-1 (Version None)
Quarter: 2008Q1

REPORT INFORMATION
  Report Type: 
  Country: None (occurrence: None)
  Receive Date: 20080320
  Receipt Date: 20080312
  Transmission Date: 20080703
  Serious: Yes (Hospitalization)
  Sender: FDA-Public Use
  Company Number: FR-PFIZER INC-2008023540

PATIENT
  Sex: Male

DRUGS (9)
  1. TRIFLUCAN [Suspect]
     Indication: CANDIDIASIS
     Route: 048
     Dates: start: 20071121, end: 20071129
  2. ADIAZINE [Suspect]
     Indication: TOXOPLASMOSIS
     Route: 048
     Dates: start: 20071119, end: 20071127
  3. LEUCOVORIN CALCIUM [Suspect]
     Indication: TOXOPLASMOSIS
     Route: 048
     Dates: start: 20071119, end: 20071127
  4. VALACYCLOVIR [Suspect]
     Indication: HERPES ZOSTER
     Route: 048
     Dates: start: 20071121, end: 20071129
  5. NEURONTIN [Suspect]
     Indication: HERPES ZOSTER
     Route: 048
     Dates: start: 20071121, end: 20071129
  6. COMBIVIR [Concomitant]
     Indication: HIV INFECTION
     Route: 048
     Dates: start: 20071126, end: 20071129
  7. KALETRA [Concomitant]
     Indication: HIV INFECTION
     Route: 048
     Dates: start: 20071126, end: 20071129
  8. MALOCIDE [Concomitant]
     Indication: TOXOPLASMOSIS
     Route: 048
  9. KEPPRA [Concomitant]
     Route: 048

REACTIONS (3)
  - PYREXIA [None]
  - RASH [None]
  - RENAL COLIC [None]
